FAERS Safety Report 8379887-6 (Version None)
Quarter: 2012Q2

REPORT INFORMATION
  Report Type: 
  Country: None (occurrence: None)
  Receive Date: 20120523
  Receipt Date: 20120518
  Transmission Date: 20120825
  Serious: Yes (Hospitalization)
  Sender: FDA-Public Use
  Company Number: ES-PFIZER INC-2012122209

PATIENT
  Age: 89 Year
  Sex: Male

DRUGS (8)
  1. NICARDIPINE HYDROCHLORIDE [Suspect]
     Dosage: UNK
     Route: 048
     Dates: start: 20070101, end: 20110824
  2. SINTROM [Suspect]
     Indication: ATRIAL FIBRILLATION
     Dosage: UNK
     Route: 048
     Dates: start: 20070101, end: 20110824
  3. ATORVASTATIN [Concomitant]
     Dosage: UNK
     Route: 048
     Dates: start: 20070101
  4. ALDACTONE [Suspect]
     Dosage: 25 MG, 1X/DAY
     Route: 048
     Dates: start: 20090101
  5. DIGOXIN [Concomitant]
     Indication: ATRIAL FIBRILLATION
     Dosage: UNK
     Route: 048
     Dates: start: 20070101
  6. ATROVENT [Concomitant]
     Route: 055
  7. FUROSEMIDE [Suspect]
     Dosage: UNK
     Route: 048
     Dates: start: 20090101
  8. FORMOTEROL W/BUDESONIDE [Concomitant]
     Route: 055

REACTIONS (2)
  - HYPONATRAEMIA [None]
  - ANAEMIA [None]
